FAERS Safety Report 23493134 (Version 1)
Quarter: 2024Q1

REPORT INFORMATION
  Report Type: Spontaneous
  Country: US (occurrence: US)
  Receive Date: 20240207
  Receipt Date: 20240207
  Transmission Date: 20240410
  Serious: No
  Sender: FDA-Public Use
  Company Number: US-JNJFOC-20240131542

PATIENT
  Age: 59 Year
  Sex: Female

DRUGS (3)
  1. PEPCID [Suspect]
     Active Substance: FAMOTIDINE
     Indication: Chest pain
     Route: 065
     Dates: start: 20240106
  2. XARELTO [Concomitant]
     Active Substance: RIVAROXABAN
     Indication: Blood disorder
     Route: 065
     Dates: start: 202212
  3. TUMS [Concomitant]
     Active Substance: CALCIUM CARBONATE
     Indication: Chest pain
     Route: 065

REACTIONS (1)
  - Off label use [Unknown]

NARRATIVE: CASE EVENT DATE: 20240106
